FAERS Safety Report 12621627 (Version 1)
Quarter: 2016Q3

REPORT INFORMATION
  Report Type: Spontaneous
  Country: US (occurrence: US)
  Receive Date: 20160804
  Receipt Date: 20160804
  Transmission Date: 20161109
  Serious: Yes (Hospitalization)
  Sender: FDA-Public Use
  Company Number: US-BAYER-2016-107596

PATIENT
  Age: 66 Year
  Sex: Female

DRUGS (4)
  1. XARELTO [Suspect]
     Active Substance: RIVAROXABAN
     Indication: THROMBOSIS PROPHYLAXIS
  2. PRASUGREL [Suspect]
     Active Substance: PRASUGREL
     Indication: PERIPHERAL ARTERIAL OCCLUSIVE DISEASE
     Dosage: UNK
  3. XARELTO [Suspect]
     Active Substance: RIVAROXABAN
     Indication: PERIPHERAL ARTERIAL OCCLUSIVE DISEASE
     Dosage: 20 MG, UNK
     Route: 048
     Dates: start: 20140904, end: 20150125
  4. ACETYLSALICYLIC ACID({=100 MG) [Suspect]
     Active Substance: ASPIRIN
     Indication: PERIPHERAL ARTERIAL OCCLUSIVE DISEASE
     Dosage: 81 MG, UNK

REACTIONS (5)
  - Gastrointestinal haemorrhage [Recovering/Resolving]
  - Haemoptysis [Unknown]
  - Off label use [Unknown]
  - Epistaxis [Unknown]
  - Product use issue [Unknown]

NARRATIVE: CASE EVENT DATE: 20150125
